FAERS Safety Report 22235713 (Version 1)
Quarter: 2023Q2

REPORT INFORMATION
  Report Type: Spontaneous
  Country: IL (occurrence: IL)
  Receive Date: 20230420
  Receipt Date: 20230420
  Transmission Date: 20230722
  Serious: Yes (Other)
  Sender: FDA-Public Use
  Company Number: IL-SUN PHARMACEUTICAL INDUSTRIES LTD-2023R1-385928

PATIENT
  Age: 58 Year
  Sex: Male

DRUGS (2)
  1. DOXYCYCLINE [Suspect]
     Active Substance: DOXYCYCLINE
     Indication: Antibiotic therapy
     Dosage: 100 MILLIGRAM, BID
     Route: 065
  2. GENTAMICIN SULFATE\PREDNISOLONE ACETATE [Suspect]
     Active Substance: GENTAMICIN SULFATE\PREDNISOLONE ACETATE
     Indication: Skin toxicity
     Dosage: UNK, TID
     Route: 061

REACTIONS (1)
  - Therapeutic response decreased [Unknown]
